FAERS Safety Report 10301521 (Version 1)
Quarter: 2014Q3

REPORT INFORMATION
  Report Type: Spontaneous
  Country: US (occurrence: None)
  Receive Date: 20140709
  Receipt Date: 20140709
  Transmission Date: 20150326
  Serious: Yes (Life-Threatening, Hospitalization, Disabling)
  Sender: FDA-Public Use
  Company Number: None

PATIENT
  Age: 33 Year
  Sex: Female
  Weight: 56.7 kg

DRUGS (1)
  1. CIMZIA [Suspect]
     Active Substance: CERTOLIZUMAB PEGOL
     Indication: CROHN^S DISEASE
     Dosage: EVERY OTHER WEEK GIVEN INTO/UNDER THE SKIN
     Route: 058

REACTIONS (3)
  - Renal failure chronic [None]
  - Polyarteritis nodosa [None]
  - Impaired work ability [None]

NARRATIVE: CASE EVENT DATE: 20130801
